FAERS Safety Report 16554824 (Version 5)
Quarter: 2019Q3

REPORT INFORMATION
  Report Type: Spontaneous
  Country: JP (occurrence: JP)
  Receive Date: 20190710
  Receipt Date: 20190813
  Transmission Date: 20191004
  Serious: Yes (Hospitalization, Other)
  Sender: FDA-Public Use
  Company Number: JP-PFIZER INC-2019275736

PATIENT
  Age: 74 Year
  Sex: Male
  Weight: 43 kg

DRUGS (7)
  1. CAMPTO [Suspect]
     Active Substance: IRINOTECAN
     Indication: NEUROENDOCRINE CARCINOMA
     Dosage: 60 MG/M2, CYCLIC
     Route: 041
     Dates: start: 20170322, end: 20170322
  2. ALOXI [Concomitant]
     Active Substance: PALONOSETRON HYDROCHLORIDE
     Dosage: UNK
  3. PROEMEND [Concomitant]
     Active Substance: FOSAPREPITANT
  4. CISPLATIN. [Concomitant]
     Active Substance: CISPLATIN
     Indication: NEUROENDOCRINE CARCINOMA
     Dosage: 60 MG/M2, CYCLIC
     Route: 042
     Dates: start: 20170322, end: 20170517
  5. CAMPTO [Suspect]
     Active Substance: IRINOTECAN
     Dosage: 47 MG, 1X/DAY
     Route: 041
     Dates: start: 20170523, end: 20170523
  6. CAMPTO [Suspect]
     Active Substance: IRINOTECAN
     Dosage: 45 MG, CYCLIC
     Route: 041
     Dates: start: 20170517, end: 20170517
  7. DEXART [Concomitant]
     Active Substance: DEXAMETHASONE SODIUM PHOSPHATE
     Dosage: UNK

REACTIONS (3)
  - Dental caries [Unknown]
  - Leukopenia [Unknown]
  - Neutrophil count decreased [Recovered/Resolved]

NARRATIVE: CASE EVENT DATE: 20170330
